FAERS Safety Report 17483796 (Version 4)
Quarter: 2020Q2

REPORT INFORMATION
  Report Type: Report from Study
  Country: US (occurrence: US)
  Receive Date: 20200302
  Receipt Date: 20200403
  Transmission Date: 20200713
  Serious: Yes (Hospitalization)
  Sender: FDA-Public Use
  Company Number: US-ACTELION-A-US2019-198299

PATIENT
  Sex: Male
  Weight: 95.24 kg

DRUGS (2)
  1. OPSUMIT [Suspect]
     Active Substance: MACITENTAN
     Indication: PULMONARY ARTERIAL HYPERTENSION
     Dosage: 10 MG, QD
     Route: 048
  2. TADALAFIL. [Concomitant]
     Active Substance: TADALAFIL

REACTIONS (10)
  - Diarrhoea [Not Recovered/Not Resolved]
  - Pain [Unknown]
  - Respiratory tract infection viral [Unknown]
  - Cerebrovascular accident [Unknown]
  - Nausea [Unknown]
  - Dyspnoea exertional [Unknown]
  - Orthopnoea [Unknown]
  - Nasopharyngitis [Unknown]
  - Dyspnoea [Unknown]
  - Therapy non-responder [Unknown]
